FAERS Safety Report 25522513 (Version 1)
Quarter: 2025Q3

REPORT INFORMATION
  Report Type: Spontaneous
  Country: GB (occurrence: GB)
  Receive Date: 20250707
  Receipt Date: 20250707
  Transmission Date: 20251020
  Serious: Yes (Life-Threatening, Hospitalization, Other)
  Sender: NOVO NORDISK
  Company Number: None

PATIENT
  Age: 35 Year
  Sex: Female

DRUGS (4)
  1. SAXENDA [Suspect]
     Active Substance: LIRAGLUTIDE
     Indication: Weight loss poor
     Dates: start: 20200107, end: 20200508
  2. PROPRANOLOL [Concomitant]
     Active Substance: PROPRANOLOL HYDROCHLORIDE
     Indication: Anxiety
  3. PAROXETINE [Concomitant]
     Active Substance: PAROXETINE
     Indication: Depression
  4. COCODAMOL [Concomitant]
     Active Substance: ACETAMINOPHEN\CODEINE PHOSPHATE
     Indication: Arthralgia

REACTIONS (3)
  - Cholelithiasis [Recovered/Resolved]
  - Cholecystectomy [Recovered/Resolved]
  - Pancreatitis [Recovering/Resolving]

NARRATIVE: CASE EVENT DATE: 20200201
